FAERS Safety Report 21436382 (Version 1)
Quarter: 2022Q4

REPORT INFORMATION
  Report Type: Report from Study
  Country: US (occurrence: US)
  Receive Date: 20221010
  Receipt Date: 20221010
  Transmission Date: 20230112
  Serious: Yes (Other)
  Sender: FDA-Public Use
  Company Number: US-ABBVIE-22K-163-4402354-00

PATIENT
  Age: 59 Year
  Sex: Male

DRUGS (1)
  1. IMBRUVICA [Suspect]
     Active Substance: IBRUTINIB
     Indication: B-cell small lymphocytic lymphoma
     Route: 048

REACTIONS (4)
  - Renal failure [Unknown]
  - Intestinal perforation [Unknown]
  - Red blood cell abnormality [Unknown]
  - Blood iron abnormal [Unknown]

NARRATIVE: CASE EVENT DATE: 20190101
